FAERS Safety Report 13981145 (Version 1)
Quarter: 2017Q3

REPORT INFORMATION
  Report Type: Spontaneous
  Country: TR (occurrence: TR)
  Receive Date: 20170918
  Receipt Date: 20170918
  Transmission Date: 20171128
  Serious: Yes (Death)
  Sender: FDA-Public Use
  Company Number: TR-CIPLA LTD.-2017TR16240

PATIENT

DRUGS (4)
  1. IFOSFAMIDE. [Suspect]
     Active Substance: IFOSFAMIDE
     Indication: HISTIOCYTIC SARCOMA
     Dosage: UNK, ON DAY 2, THREE CYCLES
     Route: 065
  2. MESNA. [Suspect]
     Active Substance: MESNA
     Indication: HISTIOCYTIC SARCOMA
     Dosage: UNK, ON DAY 2
     Route: 065
  3. ETOPOSIDE. [Suspect]
     Active Substance: ETOPOSIDE
     Indication: HISTIOCYTIC SARCOMA
     Dosage: UNK, ON DAY 1-3, THREE CYCLES
     Route: 065
  4. CARBOPLATIN. [Suspect]
     Active Substance: CARBOPLATIN
     Indication: HISTIOCYTIC SARCOMA
     Dosage: UNK, ON DAY 2, THREE CYCLES
     Route: 065

REACTIONS (1)
  - Disease progression [Fatal]
